FAERS Safety Report 13814436 (Version 1)
Quarter: 2017Q3

REPORT INFORMATION
  Report Type: Spontaneous
  Country: US (occurrence: US)
  Receive Date: 20170728
  Receipt Date: 20170728
  Transmission Date: 20171127
  Serious: Yes (Life-Threatening, Hospitalization, Other)
  Sender: FDA-Public Use
  Company Number: None

PATIENT
  Age: 49 Year
  Sex: Female
  Weight: 54 kg

DRUGS (3)
  1. TYLENOL [Concomitant]
     Active Substance: ACETAMINOPHEN
  2. OMAPRAZOL [Concomitant]
  3. BUPROPION. [Suspect]
     Active Substance: BUPROPION
     Indication: DEPRESSION
     Dosage: ?          QUANTITY:1 TABLET(S);?
     Route: 048
     Dates: start: 20170710, end: 20170728

REACTIONS (8)
  - Panic attack [None]
  - Paralysis [None]
  - Influenza like illness [None]
  - Confusional state [None]
  - Headache [None]
  - Dyspnoea [None]
  - Product substitution issue [None]
  - Fatigue [None]

NARRATIVE: CASE EVENT DATE: 20170723
